FAERS Safety Report 16101555 (Version 1)
Quarter: 2019Q1

REPORT INFORMATION
  Report Type: Spontaneous
  Country: US (occurrence: US)
  Receive Date: 20190220
  Receipt Date: 20190220
  Transmission Date: 20190418
  Serious: No
  Sender: FDA-Public Use
  Company Number: None

PATIENT
  Age: 73 Year

DRUGS (1)
  1. ENBREL [Suspect]
     Active Substance: ETANERCEPT
     Dates: start: 201502

REACTIONS (3)
  - Product distribution issue [None]
  - Therapy cessation [None]
  - Psoriatic arthropathy [None]

NARRATIVE: CASE EVENT DATE: 20190220
